FAERS Safety Report 9088703 (Version 1)
Quarter: 2013Q1

REPORT INFORMATION
  Report Type: Spontaneous
  Country: AR (occurrence: AR)
  Receive Date: 20130201
  Receipt Date: 20130201
  Transmission Date: 20140127
  Serious: Yes (Hospitalization, Other)
  Sender: FDA-Public Use
  Company Number: PHHY2013AR008928

PATIENT
  Sex: Male

DRUGS (1)
  1. DIOVAN D [Suspect]
     Indication: HYPERTENSION
     Dosage: 1 DF, (160/25MG) DAILY
     Route: 048
     Dates: start: 2011

REACTIONS (6)
  - Cerebrovascular accident [Recovering/Resolving]
  - Hemiplegia [Recovered/Resolved]
  - VIIth nerve paralysis [Recovering/Resolving]
  - Speech disorder [Recovered/Resolved]
  - Weight decreased [Not Recovered/Not Resolved]
  - Eating disorder [Unknown]
